FAERS Safety Report 8950268 (Version 1)
Quarter: 2012Q4

REPORT INFORMATION
  Report Type: 
  Country: US (occurrence: US)
  Receive Date: 20121205
  Receipt Date: 20121205
  Transmission Date: 20130627
  Serious: Yes (Other)
  Sender: FDA-Public Use
  Company Number: CHPA2012US023915

PATIENT
  Sex: Female

DRUGS (1)
  1. EXCEDRIN EXTRA STRENGTH [Suspect]
     Indication: STRESS
     Dosage: 1 DF, PRN
     Route: 048
     Dates: start: 1960

REACTIONS (5)
  - Blood cholesterol abnormal [Recovered/Resolved]
  - Osteoporosis [Recovered/Resolved]
  - Memory impairment [Not Recovered/Not Resolved]
  - Off label use [Unknown]
  - Underdose [Unknown]
